FAERS Safety Report 5794671-5 (Version None)
Quarter: 2008Q2

REPORT INFORMATION
  Report Type: 
  Country: None (occurrence: None)
  Receive Date: 20080627
  Receipt Date: 20080627
  Transmission Date: 20081010
  Serious: Yes (Hospitalization)
  Sender: FDA-Public Use
  Company Number: None

PATIENT
  Sex: Male
  Weight: 81.1939 kg

DRUGS (10)
  1. DIGOXIN [Suspect]
     Indication: ATRIAL FIBRILLATION
     Dosage: 0.25MG PO QDAY  (THERAPY DATES: PRIOR TO ADMISSION)
     Route: 048
  2. COUMADIN [Concomitant]
  3. LASIX [Concomitant]
  4. LOPRESSOR [Concomitant]
  5. FOLIC ACID [Concomitant]
  6. XANAX [Concomitant]
  7. ALLOPURINOL [Concomitant]
  8. VASOTEC [Concomitant]
  9. COZAAR [Concomitant]
  10. IRON [Concomitant]

REACTIONS (3)
  - CONFUSIONAL STATE [None]
  - MENTAL STATUS CHANGES [None]
  - SINUS BRADYCARDIA [None]
